FAERS Safety Report 6557316-2 (Version None)
Quarter: 2010Q1

REPORT INFORMATION
  Report Type: 
  Country: None (occurrence: None)
  Receive Date: 20100127
  Receipt Date: 20100127
  Transmission Date: 20100710
  Serious: Yes (Death)
  Sender: FDA-Public Use
  Company Number: None

PATIENT
  Age: 46 Year
  Sex: Female

DRUGS (1)
  1. TYSABRI [Suspect]
     Indication: MULTIPLE SCLEROSIS
     Dosage: 1.5 YEARS

REACTIONS (14)
  - ASTHENIA [None]
  - BRAIN STEM SYNDROME [None]
  - CONFUSIONAL STATE [None]
  - DROOLING [None]
  - ENTEROCOCCAL INFECTION [None]
  - GAIT DISTURBANCE [None]
  - GENERAL PHYSICAL HEALTH DETERIORATION [None]
  - IMMUNOSUPPRESSION [None]
  - IRIS DISORDER [None]
  - JC VIRUS TEST POSITIVE [None]
  - MUSCULAR WEAKNESS [None]
  - RESPIRATORY FAILURE [None]
  - SPEECH DISORDER [None]
  - VISUAL ACUITY REDUCED [None]
